FAERS Safety Report 8347819-2 (Version None)
Quarter: 2012Q2

REPORT INFORMATION
  Report Type: 
  Country: None (occurrence: None)
  Receive Date: 20120509
  Receipt Date: 20120501
  Transmission Date: 20120825
  Serious: Yes (Hospitalization, Congenital Anomaly)
  Sender: FDA-Public Use
  Company Number: US-GLAXOSMITHKLINE-A0976827A

PATIENT
  Sex: Female
  Weight: 3.5 kg

DRUGS (1)
  1. PAXIL [Suspect]
     Indication: ANXIETY
     Dosage: 20MG PER DAY
     Route: 064

REACTIONS (8)
  - NEUROGENIC BLADDER [None]
  - HAEMANGIOMA CONGENITAL [None]
  - BENIGN NEOPLASM OF SPINAL CORD [None]
  - MENINGOMYELOCELE [None]
  - GENITAL LABIAL ADHESIONS [None]
  - FOETAL EXPOSURE DURING PREGNANCY [None]
  - SPINA BIFIDA [None]
  - TETHERED CORD SYNDROME [None]
